FAERS Safety Report 6468629-7 (Version None)
Quarter: 2009Q4

REPORT INFORMATION
  Report Type: 
  Country: None (occurrence: None)
  Receive Date: 20091203
  Receipt Date: 20091125
  Transmission Date: 20100525
  Serious: Yes (Other)
  Sender: FDA-Public Use
  Company Number: BR-ROCHE-671169

PATIENT
  Age: 26 Year
  Sex: Female

DRUGS (1)
  1. ROACUTAN [Suspect]
     Indication: ACNE
     Dosage: START DATE REPORTED AS: DEC 2008- JAN 2009; STOP DATE REPORTED AS: JUN-JUL 2009
     Route: 065
     Dates: start: 20081201, end: 20090701

REACTIONS (2)
  - CERVICITIS [None]
  - UTERINE CERVICAL SQUAMOUS METAPLASIA [None]
